FAERS Safety Report 9364121 (Version 1)
Quarter: 2013Q2

REPORT INFORMATION
  Report Type: Spontaneous
  Country: CA (occurrence: CA)
  Receive Date: 20130624
  Receipt Date: 20130624
  Transmission Date: 20140414
  Serious: Yes (Death)
  Sender: FDA-Public Use
  Company Number: CA-B.I. PHARMACEUTICALS,INC./RIDGEFIELD-2013-CN-01112CN

PATIENT
  Age: 68 Year
  Sex: Female

DRUGS (5)
  1. PRADAX [Suspect]
     Route: 065
  2. AMITRIPTYLINE [Concomitant]
  3. AMLODIPINE [Concomitant]
  4. FUROSEMIDE [Concomitant]
  5. METOPROLOL [Concomitant]

REACTIONS (4)
  - Intestinal ischaemia [Fatal]
  - Colectomy [Fatal]
  - Hypotension [Fatal]
  - Splenectomy [Fatal]
